FAERS Safety Report 9422907 (Version 2)
Quarter: 2013Q3

REPORT INFORMATION
  Report Type: Report from Study
  Country: US (occurrence: US)
  Receive Date: 20130726
  Receipt Date: 20130807
  Transmission Date: 20140515
  Serious: Yes (Other)
  Sender: FDA-Public Use
  Company Number: US-JNJFOC-20130600166

PATIENT
  Age: 49 Year
  Sex: Male
  Weight: 79.38 kg

DRUGS (9)
  1. REMICADE [Suspect]
     Indication: CROHN^S DISEASE
     Route: 042
     Dates: start: 20130502, end: 20130502
  2. REMICADE [Suspect]
     Indication: CROHN^S DISEASE
     Route: 042
     Dates: start: 201305
  3. DIOVAN [Suspect]
     Indication: HYPERTENSION
     Route: 065
     Dates: end: 20130515
  4. DIOVAN [Suspect]
     Indication: HYPERTENSION
     Route: 065
     Dates: start: 20130515, end: 2013
  5. DIOVAN [Suspect]
     Indication: HYPERTENSION
     Route: 065
     Dates: start: 2013
  6. BUDESONIDE [Concomitant]
     Indication: CROHN^S DISEASE
     Route: 048
     Dates: start: 2013
  7. VITAMIN B12 [Concomitant]
     Indication: MEDICAL DIET
     Route: 060
     Dates: start: 201305
  8. FOLIC ACID [Concomitant]
     Indication: MEDICAL DIET
     Route: 048
  9. IRON [Concomitant]
     Indication: MEDICAL DIET
     Route: 048

REACTIONS (2)
  - Hypertension [Not Recovered/Not Resolved]
  - Heart rate irregular [Unknown]
